FAERS Safety Report 8456466-3 (Version None)
Quarter: 2012Q2

REPORT INFORMATION
  Report Type: 
  Country: None (occurrence: None)
  Receive Date: 20120621
  Receipt Date: 20120606
  Transmission Date: 20120825
  Serious: Yes (Other)
  Sender: FDA-Public Use
  Company Number: JP-ROCHE-1079020

PATIENT
  Age: 16 Year
  Sex: Male

DRUGS (3)
  1. CYCLOSPORINE [Concomitant]
     Indication: NEPHROTIC SYNDROME
  2. MYCOPHENOLATE MOFETIL [Concomitant]
  3. RITUXIMAB [Suspect]
     Indication: NEPHROTIC SYNDROME

REACTIONS (1)
  - AGRANULOCYTOSIS [None]
